FAERS Safety Report 7555085-0 (Version None)
Quarter: 2011Q2

REPORT INFORMATION
  Report Type: 
  Country: None (occurrence: None)
  Receive Date: 20110617
  Receipt Date: 20110613
  Transmission Date: 20111010
  Serious: Yes (Hospitalization)
  Sender: FDA-Public Use
  Company Number: CL-BRISTOL-MYERS SQUIBB COMPANY-15190598

PATIENT
  Age: 72 Year
  Sex: Male

DRUGS (5)
  1. CARVEDILOL [Concomitant]
     Dates: start: 20091120
  2. PLACEBO [Suspect]
     Indication: THROMBOSIS PROPHYLAXIS
     Dosage: INTERRUPTED ON 08JUL2010
     Route: 048
     Dates: start: 20091203
  3. INSULIN [Concomitant]
     Dates: start: 20060101
  4. LOSARTAN POTASSIUM [Concomitant]
     Dates: start: 20090801
  5. WARFARIN SODIUM [Suspect]
     Indication: THROMBOSIS PROPHYLAXIS
     Dosage: NO OF COURSES: 1; INTERRUPTED ON 08JUL2010
     Route: 048
     Dates: start: 20091203

REACTIONS (2)
  - MALLORY-WEISS SYNDROME [None]
  - HAEMATEMESIS [None]
